FAERS Safety Report 10485369 (Version 1)
Quarter: 2014Q3

REPORT INFORMATION
  Report Type: Report from Study
  Country: US (occurrence: US)
  Receive Date: 20140930
  Receipt Date: 20140930
  Transmission Date: 20150326
  Serious: Yes (Other)
  Sender: FDA-Public Use
  Company Number: US-ALEXION PHARMACEUTICALS INC-A201102495

PATIENT
  Sex: Male

DRUGS (1)
  1. SOLIRIS [Suspect]
     Active Substance: ECULIZUMAB
     Indication: PAROXYSMAL NOCTURNAL HAEMOGLOBINURIA
     Dosage: UNK
     Route: 042

REACTIONS (12)
  - Wrist fracture [Unknown]
  - Rib fracture [Unknown]
  - Portal vein pressure increased [Unknown]
  - Varices oesophageal [Unknown]
  - Upper gastrointestinal haemorrhage [Unknown]
  - Depression [Unknown]
  - Gastrointestinal inflammation [Unknown]
  - Haematoma [Unknown]
  - Spinal compression fracture [Unknown]
  - Fall [Unknown]
  - Hepatic cirrhosis [Unknown]
  - Retrograde portal vein flow [Unknown]
